FAERS Safety Report 12802969 (Version 1)
Quarter: 2016Q4

REPORT INFORMATION
  Report Type: Spontaneous
  Country: US (occurrence: US)
  Receive Date: 20161001
  Receipt Date: 20161001
  Transmission Date: 20170207
  Serious: Yes (Life-Threatening, Hospitalization, Disabling, Other)
  Sender: FDA-Public Use
  Company Number: None

PATIENT
  Age: 9 Month
  Sex: Male
  Weight: 8.55 kg

DRUGS (3)
  1. BABY TEETHING (HYLAND HOMEOPATHIC) [Suspect]
     Active Substance: HOMEOPATHICS
     Indication: TEETHING
     Dosage: ?          QUANTITY:2 TABLET(S);OTHER ROUTE:ON GUMS?
     Dates: start: 20160711, end: 20160912
  2. POLY-VI-FLOR [Concomitant]
  3. HYLAND^S BABY TINY COLD TABLETS [Suspect]
     Active Substance: HOMEOPATHICS
     Indication: NASOPHARYNGITIS
     Dosage: ?          QUANTITY:2 TABLET(S);?
     Route: 048
     Dates: start: 20160831, end: 20160912

REACTIONS (4)
  - Vomiting [None]
  - Seizure [None]
  - Motor developmental delay [None]
  - Blindness [None]

NARRATIVE: CASE EVENT DATE: 20160913
